FAERS Safety Report 9118403 (Version 1)
Quarter: 2013Q1

REPORT INFORMATION
  Report Type: Spontaneous
  Country: US (occurrence: None)
  Receive Date: 20130221
  Receipt Date: 20130221
  Transmission Date: 20140127
  Serious: No
  Sender: FDA-Public Use
  Company Number: None

PATIENT
  Age: 9 Year
  Sex: Male
  Weight: 27.22 kg

DRUGS (1)
  1. REMICADE [Suspect]
     Indication: CROHN^S DISEASE
     Dates: start: 20120113, end: 20120113

REACTIONS (6)
  - Urticaria [None]
  - Swelling face [None]
  - Vomiting [None]
  - Retching [None]
  - Hypersensitivity [None]
  - Infusion related reaction [None]
